FAERS Safety Report 13930572 (Version 1)
Quarter: 2017Q3

REPORT INFORMATION
  Report Type: Spontaneous
  Country: FR (occurrence: FR)
  Receive Date: 20170901
  Receipt Date: 20170901
  Transmission Date: 20171127
  Serious: Yes (Other)
  Sender: FDA-Public Use
  Company Number: FR-ALLERGAN-1749061US

PATIENT
  Age: 83 Year
  Sex: Male

DRUGS (1)
  1. LUMIGAN [Suspect]
     Active Substance: BIMATOPROST
     Indication: PRODUCT USED FOR UNKNOWN INDICATION
     Dosage: 2 GTT, UNK
     Route: 047

REACTIONS (7)
  - Dizziness [Recovering/Resolving]
  - Photophobia [Recovering/Resolving]
  - Conjunctival oedema [Recovering/Resolving]
  - Somnolence [Recovering/Resolving]
  - Suicidal ideation [Recovering/Resolving]
  - Malaise [Recovering/Resolving]
  - Headache [Recovering/Resolving]
